FAERS Safety Report 5838832-5 (Version None)
Quarter: 2008Q3

REPORT INFORMATION
  Report Type: 
  Country: None (occurrence: None)
  Receive Date: 20080808
  Receipt Date: 20080801
  Transmission Date: 20090109
  Serious: Yes (Hospitalization, Other)
  Sender: FDA-Public Use
  Company Number: US-AMGEN-QUU296528

PATIENT
  Sex: Female
  Weight: 83.5 kg

DRUGS (29)
  1. ENBREL [Suspect]
     Indication: RHEUMATOID ARTHRITIS
     Route: 058
     Dates: start: 19981201, end: 20080201
  2. METHOTREXATE [Concomitant]
     Dates: start: 19890101, end: 20080301
  3. ACTONEL [Concomitant]
  4. VITAMIN D [Concomitant]
  5. PREVACID [Concomitant]
  6. BONIVA [Concomitant]
     Dates: end: 20080301
  7. THYROID TAB [Concomitant]
  8. BISOPROLOL FUMARATE AND HYDROCHLOROTHIAZIDE [Concomitant]
  9. LEUCOVORIN CALCIUM [Concomitant]
  10. BENADRYL [Concomitant]
     Route: 047
  11. CITRACAL [Concomitant]
  12. HERBAL SUPPLEMENT [Concomitant]
  13. TRAMADOL HCL [Concomitant]
  14. FLEXERIL [Concomitant]
     Route: 048
  15. LISINOPRIL [Concomitant]
  16. BENICAR [Concomitant]
  17. LEVOTHROID [Concomitant]
  18. PRILOSEC [Concomitant]
  19. OS-CAL [Concomitant]
  20. CHOLESTYRAMINE [Concomitant]
  21. LOVAZA [Concomitant]
  22. IMODIUM [Concomitant]
  23. GENTEAL [Concomitant]
     Route: 047
  24. LINEZOLID [Concomitant]
  25. AVELOX [Concomitant]
  26. ALBUTEROL [Concomitant]
     Route: 055
  27. SYMBICORT [Concomitant]
     Route: 055
  28. SODIUM BICARBONATE [Concomitant]
     Route: 048
  29. MELOXICAM [Concomitant]
     Route: 048

REACTIONS (36)
  - ABDOMINAL PANNICULECTOMY [None]
  - ANAEMIA [None]
  - ARTHRALGIA [None]
  - ARTHRITIS [None]
  - ASTHMA [None]
  - ATRIAL FIBRILLATION [None]
  - BACK PAIN [None]
  - CELLULITIS [None]
  - CHOLECYSTECTOMY [None]
  - DEPRESSION [None]
  - DIVERTICULUM [None]
  - EXCORIATION [None]
  - EXFOLIATIVE RASH [None]
  - FIBROMYALGIA [None]
  - GASTRITIS [None]
  - GASTROINTESTINAL PAIN [None]
  - GASTROOESOPHAGEAL REFLUX DISEASE [None]
  - HIATUS HERNIA [None]
  - HYPERCHOLESTEROLAEMIA [None]
  - HYPERTENSION [None]
  - HYPOTHYROIDISM [None]
  - HYSTERECTOMY [None]
  - INTERVERTEBRAL DISC DEGENERATION [None]
  - IRRITABLE BOWEL SYNDROME [None]
  - LYMPHOMA [None]
  - NEPHROLITHIASIS [None]
  - OSTEOPOROSIS [None]
  - PAIN IN EXTREMITY [None]
  - PHAEOCHROMOCYTOMA [None]
  - PLEURAL EFFUSION [None]
  - PSORIASIS [None]
  - RENAL FAILURE ACUTE [None]
  - SEPSIS [None]
  - SINUS DISORDER [None]
  - SUPRAVENTRICULAR TACHYCARDIA [None]
  - THYROID NEOPLASM [None]
